FAERS Safety Report 16475629 (Version 1)
Quarter: 2019Q2

REPORT INFORMATION
  Report Type: Spontaneous
  Country: MY (occurrence: MY)
  Receive Date: 20190625
  Receipt Date: 20190625
  Transmission Date: 20190711
  Serious: Yes (Hospitalization, Other)
  Sender: FDA-Public Use
  Company Number: MY-PFIZER INC-2019264192

PATIENT
  Age: 65 Year
  Sex: Female

DRUGS (1)
  1. LEVOPHED [Suspect]
     Active Substance: NOREPINEPHRINE BITARTRATE
     Indication: HYPOTENSION
     Dosage: UNK (MG)
     Route: 042

REACTIONS (1)
  - Cyanosis [Recovering/Resolving]
